FAERS Safety Report 6655974-5 (Version None)
Quarter: 2010Q1

REPORT INFORMATION
  Report Type: 
  Country: None (occurrence: None)
  Receive Date: 20100326
  Receipt Date: 20100326
  Transmission Date: 20100710
  Serious: No
  Sender: FDA-Public Use
  Company Number: None

PATIENT
  Sex: Male
  Weight: 93.8946 kg

DRUGS (1)
  1. LEVOFLOXACIN [Suspect]
     Indication: CYSTITIS
     Dosage: 1 DAILY 750 1-DAILY TOTAL=5 JAN 5TH (1ST DAY) 5 DAYS
     Dates: start: 20100105

REACTIONS (1)
  - TENDON PAIN [None]
